FAERS Safety Report 19507713 (Version 1)
Quarter: 2021Q3

REPORT INFORMATION
  Report Type: Spontaneous
  Country: IN (occurrence: IN)
  Receive Date: 20210708
  Receipt Date: 20210708
  Transmission Date: 20211014
  Serious: Yes (Other)
  Sender: FDA-Public Use
  Company Number: IN-MYLANLABS-2021M1039746

PATIENT
  Age: 15 Year
  Sex: Female

DRUGS (3)
  1. METHOTREXATE. [Suspect]
     Active Substance: METHOTREXATE
     Indication: UVEITIS
     Dosage: 15 MILLIGRAM, QW
     Route: 065
  2. PREDNISOLONE. [Concomitant]
     Active Substance: PREDNISOLONE
     Indication: UVEITIS
     Dosage: 1 MILLIGRAM/KILOGRAM
     Route: 048
  3. METHOTREXATE. [Suspect]
     Active Substance: METHOTREXATE
     Indication: IMMUNOSUPPRESSANT DRUG THERAPY
     Dosage: 20 MILLIGRAM, QW
     Route: 065

REACTIONS (3)
  - Eye abscess [Recovered/Resolved]
  - Tuberculosis of eye [Recovered/Resolved]
  - Chorioretinal atrophy [Not Recovered/Not Resolved]
